FAERS Safety Report 9021441 (Version 2)
Quarter: 2013Q1

REPORT INFORMATION
  Report Type: Spontaneous
  Country: US (occurrence: US)
  Receive Date: 20130119
  Receipt Date: 20130129
  Transmission Date: 20140127
  Serious: No
  Sender: FDA-Public Use
  Company Number: US-009507513-1301USA006215

PATIENT
  Age: 72 Year
  Sex: Male

DRUGS (5)
  1. VYTORIN [Suspect]
     Indication: HYPERCHOLESTEROLAEMIA
     Dosage: 20 MG, QD
     Route: 048
     Dates: start: 201101
  2. METFORMIN [Concomitant]
     Dosage: 1000 MG, BID
  3. METOPROLOL [Concomitant]
     Dosage: 25 MG, QD
  4. SINOPRIL [Concomitant]
     Dosage: 10 MG, QD
  5. PLAVIX [Concomitant]
     Dosage: 75 MG, QD

REACTIONS (2)
  - Pain in extremity [Unknown]
  - Asthenia [Unknown]
